FAERS Safety Report 17245030 (Version 2)
Quarter: 2022Q1

REPORT INFORMATION
  Report Type: Spontaneous
  Country: DE (occurrence: DE)
  Receive Date: 20200108
  Receipt Date: 20220311
  Transmission Date: 20220424
  Serious: Yes (Hospitalization, Other)
  Sender: FDA-Public Use
  Company Number: DE-SUN PHARMACEUTICAL INDUSTRIES LTD-2019R1-232347

PATIENT
  Age: 52 Year
  Sex: Female
  Weight: 77 kg

DRUGS (1)
  1. FLECAINIDE [Suspect]
     Active Substance: FLECAINIDE
     Indication: Atrial fibrillation
     Dosage: 200 MILLIGRAM
     Route: 065

REACTIONS (2)
  - Cardiogenic shock [Recovering/Resolving]
  - Ejection fraction decreased [Recovering/Resolving]
